FAERS Safety Report 11831727 (Version 1)
Quarter: 2015Q4

REPORT INFORMATION
  Report Type: Spontaneous
  Country: DE (occurrence: DE)
  Receive Date: 20151214
  Receipt Date: 20151214
  Transmission Date: 20160305
  Serious: Yes (Other)
  Sender: FDA-Public Use
  Company Number: DE-BAYER-2015-482876

PATIENT
  Sex: Male

DRUGS (12)
  1. L-THYROXIN [Concomitant]
     Active Substance: LEVOTHYROXINE SODIUM
     Indication: THYROID OPERATION
  2. NEBILET [Concomitant]
     Active Substance: NEBIVOLOL
  3. ZYTIGA [Concomitant]
     Active Substance: ABIRATERONE ACETATE
  4. ZOMETA [Concomitant]
     Active Substance: ZOLEDRONIC ACID
  5. ARCOXIA [Concomitant]
     Active Substance: ETORICOXIB
     Dosage: UNK
  6. VALSARTAN AND HYDROCHLOROTHIAZIDE [Concomitant]
     Active Substance: HYDROCHLOROTHIAZIDE\VALSARTAN
  7. XOFIGO [Suspect]
     Active Substance: RADIUM RA-223 DICHLORIDE
     Indication: PROSTATE CANCER
     Dosage: (WAS GIVEN 6 TIMES)
  8. MARCUMAR [Concomitant]
     Active Substance: PHENPROCOUMON
     Indication: ATRIAL FIBRILLATION
  9. ESTRAMUSTIN [Concomitant]
     Active Substance: ESTRAMUSTINE PHOSPHATE SODIUM
     Indication: PROSTATIC SPECIFIC ANTIGEN INCREASED
     Dosage: UNK
     Dates: start: 201306
  10. DECORTIN [Concomitant]
     Active Substance: PREDNISONE
  11. DEGARELIX [Concomitant]
     Active Substance: DEGARELIX
  12. ZOPICLON [Concomitant]
     Active Substance: ZOPICLONE
     Dosage: UNK

REACTIONS (4)
  - Disease progression [None]
  - Laboratory test abnormal [None]
  - Metastases to bone [None]
  - Drug ineffective [None]
